FAERS Safety Report 18735280 (Version 1)
Quarter: 2021Q1

REPORT INFORMATION
  Report Type: Spontaneous
  Country: US (occurrence: US)
  Receive Date: 20210113
  Receipt Date: 20210113
  Transmission Date: 20210419
  Serious: Yes (Other)
  Sender: FDA-Public Use
  Company Number: US-SK LIFE SCIENCE, INC-SKPVG-2021-000024

PATIENT

DRUGS (2)
  1. XCOPRI [Suspect]
     Active Substance: CENOBAMATE
     Indication: EPILEPSY
     Dosage: 200 MILLIGRAM, QD, BRAKING XCOPRI 200MG TABLETS IN HALF
     Route: 048
     Dates: start: 20201207
  2. XCOPRI [Suspect]
     Active Substance: CENOBAMATE
     Indication: SEIZURE

REACTIONS (3)
  - Facial bones fracture [Unknown]
  - Fall [Unknown]
  - Wrong technique in product usage process [Unknown]
